FAERS Safety Report 17908554 (Version 2)
Quarter: 2020Q2

REPORT INFORMATION
  Report Type: Spontaneous
  Country: AU (occurrence: AU)
  Receive Date: 20200617
  Receipt Date: 20200625
  Transmission Date: 20200714
  Serious: Yes (Other)
  Sender: FDA-Public Use
  Company Number: AU-PFIZER INC-2020233567

PATIENT
  Age: 52 Year
  Sex: Male

DRUGS (9)
  1. PREDNISOLONE. [Suspect]
     Active Substance: PREDNISOLONE
     Indication: PLASMABLASTIC LYMPHOMA
     Dosage: UNK, CYCLIC (EVERY 21 DAYS, WEANING DOSE)
  2. CYCLOPHOSPHAMIDE. [Suspect]
     Active Substance: CYCLOPHOSPHAMIDE
     Indication: PLASMABLASTIC LYMPHOMA
     Dosage: UNK, CYCLIC (EVERY 21 DAYS)
  3. VINCRISTINE SULFATE. [Suspect]
     Active Substance: VINCRISTINE SULFATE
     Indication: PLASMABLASTIC LYMPHOMA
     Dosage: UNK, CYCLIC (EVERY 21 DAYS)
  4. DOXORUBICIN HCL [Suspect]
     Active Substance: DOXORUBICIN HYDROCHLORIDE
     Indication: PLASMABLASTIC LYMPHOMA
     Dosage: UNK, CYCLIC (EVERY 21 DAYS)
  5. PREDNISOLONE. [Suspect]
     Active Substance: PREDNISOLONE
     Indication: DERMATOMYOSITIS
  6. RAMIPRIL. [Concomitant]
     Active Substance: RAMIPRIL
     Indication: HYPERTENSION
     Dosage: UNK
  7. BORTEZOMIB. [Suspect]
     Active Substance: BORTEZOMIB
     Indication: PLASMABLASTIC LYMPHOMA
     Dosage: UNK, CYCLIC (1.3 G/M2 ON DAYS 3 AND 6 OF EACH CYCLE, EVERY 21 DAYS)
  8. METFORMIN [Concomitant]
     Active Substance: METFORMIN HYDROCHLORIDE
     Indication: TYPE 2 DIABETES MELLITUS
     Dosage: UNK
  9. ETOPOSIDE. [Suspect]
     Active Substance: ETOPOSIDE
     Indication: PLASMABLASTIC LYMPHOMA
     Dosage: UNK, CYCLIC (EVERY 21 DAYS)

REACTIONS (2)
  - Bone marrow failure [Unknown]
  - Neuropathy peripheral [Unknown]
